FAERS Safety Report 9368786 (Version 2)
Quarter: 2013Q3

REPORT INFORMATION
  Report Type: Report from Study
  Country: GB (occurrence: GB)
  Receive Date: 20130626
  Receipt Date: 20130807
  Transmission Date: 20140515
  Serious: Yes (Hospitalization)
  Sender: FDA-Public Use
  Company Number: GB-ROCHE-1241508

PATIENT
  Sex: Male

DRUGS (1)
  1. RANIBIZUMAB [Suspect]
     Indication: PRODUCT USED FOR UNKNOWN INDICATION
     Dosage: DATE OF LAST DOSE PRIOR TO SAE: 02/JAN/2013
     Route: 050
     Dates: start: 20120314

REACTIONS (2)
  - Abdominal pain [Unknown]
  - Neuroendocrine tumour [Not Recovered/Not Resolved]
